FAERS Safety Report 7702062-2 (Version None)
Quarter: 2011Q3

REPORT INFORMATION
  Report Type: 
  Country: None (occurrence: None)
  Receive Date: 20110822
  Receipt Date: 20110817
  Transmission Date: 20111222
  Serious: Yes (Death, Other)
  Sender: FDA-Public Use
  Company Number: CH-PFIZER INC-2011189050

PATIENT
  Age: 72 Year
  Sex: Male

DRUGS (4)
  1. MORPHINE [Concomitant]
     Dosage: 2.5 MG, 6X/DAY
  2. VOLIBRIS [Suspect]
     Indication: PULMONARY ARTERIAL HYPERTENSION
     Dosage: 5 MG, 1X/DAY
     Route: 048
     Dates: start: 20100901, end: 20110716
  3. REVATIO [Suspect]
     Indication: PULMONARY ARTERIAL HYPERTENSION
     Dosage: 20 MG, 3X/DAY
     Route: 048
     Dates: start: 20100901, end: 20110716
  4. SINTROM [Concomitant]
     Indication: PULMONARY ARTERIAL HYPERTENSION
     Dosage: UNK
     Route: 048
     Dates: end: 20110719

REACTIONS (16)
  - BLOOD BILIRUBIN INCREASED [None]
  - NORMOCHROMIC NORMOCYTIC ANAEMIA [None]
  - PERIPANCREATIC FLUID COLLECTION [None]
  - PLEURAL EFFUSION [None]
  - INFLAMMATION [None]
  - DEATH [None]
  - BILIRUBIN CONJUGATED INCREASED [None]
  - PLATELET COUNT INCREASED [None]
  - PORTAL VEIN THROMBOSIS [None]
  - CACHEXIA [None]
  - ASPARTATE AMINOTRANSFERASE INCREASED [None]
  - GAMMA-GLUTAMYLTRANSFERASE INCREASED [None]
  - ATELECTASIS [None]
  - VENOUS THROMBOSIS [None]
  - BLOOD ALKALINE PHOSPHATASE INCREASED [None]
  - INTERNATIONAL NORMALISED RATIO DECREASED [None]
